FAERS Safety Report 14072198 (Version 2)
Quarter: 2019Q3

REPORT INFORMATION
  Report Type: Spontaneous
  Country: US (occurrence: US)
  Receive Date: 20171010
  Receipt Date: 20190830
  Transmission Date: 20191004
  Serious: No
  Sender: FDA-Public Use
  Company Number: US-SA-2017SA172188

PATIENT
  Age: 29 Year
  Sex: Female

DRUGS (2)
  1. DUPIXENT [Suspect]
     Active Substance: DUPILUMAB
     Dosage: 300 MG,QOW
     Route: 058
     Dates: start: 201709
  2. DUPIXENT [Suspect]
     Active Substance: DUPILUMAB
     Indication: DERMATITIS ATOPIC
     Dosage: 300 MG, QOW
     Route: 058
     Dates: start: 20170801

REACTIONS (6)
  - Product dose omission [Unknown]
  - Conjunctivitis [Unknown]
  - Eye irritation [Unknown]
  - Rash [Unknown]
  - Eye discharge [Unknown]
  - Dry skin [Unknown]

NARRATIVE: CASE EVENT DATE: 201711
